FAERS Safety Report 8412785-8 (Version None)
Quarter: 2012Q2

REPORT INFORMATION
  Report Type: 
  Country: None (occurrence: None)
  Receive Date: 20120531
  Receipt Date: 20120531
  Transmission Date: 20120825
  Serious: No
  Sender: FDA-Public Use
  Company Number: None

PATIENT
  Sex: Male

DRUGS (1)
  1. REVLIMID [Suspect]
     Dosage: 10MG QD PO
     Route: 048
     Dates: start: 20120302, end: 20120529

REACTIONS (1)
  - DRUG INEFFECTIVE [None]
